FAERS Safety Report 14579185 (Version 1)
Quarter: 2018Q1

REPORT INFORMATION
  Report Type: Report from Study
  Country: FR (occurrence: FR)
  Receive Date: 20180227
  Receipt Date: 20180227
  Transmission Date: 20180509
  Serious: Yes (Life-Threatening)
  Sender: FDA-Public Use
  Company Number: FR-SA-2018SA050563

PATIENT
  Age: 88 Year
  Sex: Male
  Weight: 78 kg

DRUGS (6)
  1. NO IMP ADMINISTERED IN STUDY ARM (AFLIBERCEPT) [Suspect]
     Active Substance: AFLIBERCEPT
     Route: 065
  2. SIMVASTATIN. [Concomitant]
     Active Substance: SIMVASTATIN
     Route: 065
  3. TELMISARTAN. [Concomitant]
     Active Substance: TELMISARTAN
     Route: 065
  4. CLOPIDOGREL BISULFATE. [Suspect]
     Active Substance: CLOPIDOGREL BISULFATE
     Route: 048
     Dates: start: 20170929, end: 20171103
  5. VERAPAMIL HYDROCHLORIDE. [Concomitant]
     Active Substance: VERAPAMIL HYDROCHLORIDE
     Route: 065
  6. ACETYLSALICYLATE LYSINE [Suspect]
     Active Substance: ASPIRIN DL-LYSINE
     Route: 048
     Dates: start: 20170929, end: 20171103

REACTIONS (1)
  - Prosthetic cardiac valve thrombosis [Recovered/Resolved]

NARRATIVE: CASE EVENT DATE: 20171103
